FAERS Safety Report 7026959-4 (Version None)
Quarter: 2010Q3

REPORT INFORMATION
  Report Type: 
  Country: None (occurrence: None)
  Receive Date: 20100929
  Receipt Date: 20100916
  Transmission Date: 20110219
  Serious: Yes (Other)
  Sender: FDA-Public Use
  Company Number: ALA_00801_2010

PATIENT
  Sex: Female
  Weight: 2.8 kg

DRUGS (3)
  1. ROWASA [Suspect]
     Dosage: (DF TRANSPLACENTAL)
     Route: 064
     Dates: start: 20091106, end: 20091130
  2. IMUREL /00001501/ (IMUREL) (NOT SPECIFIED) [Suspect]
     Dosage: (DF TRANSPLACENTAL)
     Route: 064
     Dates: start: 20091106, end: 20091130
  3. PENTASA [Suspect]
     Dosage: (DF TRANSPLACENTAL)
     Route: 064
     Dates: start: 20091106, end: 20091130

REACTIONS (3)
  - CAESAREAN SECTION [None]
  - FOETAL DISTRESS SYNDROME [None]
  - MATERNAL DRUGS AFFECTING FOETUS [None]
